FAERS Safety Report 14197477 (Version 2)
Quarter: 2017Q4

REPORT INFORMATION
  Report Type: Report from Study
  Country: GR (occurrence: GR)
  Receive Date: 20171116
  Receipt Date: 20171215
  Transmission Date: 20180321
  Serious: Yes (Hospitalization, Other)
  Sender: FDA-Public Use
  Company Number: GR-GILEAD-2017-0304665

PATIENT
  Age: 32 Year
  Sex: Male
  Weight: 70 kg

DRUGS (1)
  1. EMTRICITABINE/TENOFOVIR DISOPROXIL FUMARATE [Suspect]
     Active Substance: EMTRICITABINE\TENOFOVIR DISOPROXIL FUMARATE
     Indication: PROPHYLAXIS AGAINST HIV INFECTION
     Dosage: UNK, QD
     Route: 048
     Dates: start: 20171007

REACTIONS (2)
  - Suicide attempt [Recovering/Resolving]
  - Depression [Recovering/Resolving]

NARRATIVE: CASE EVENT DATE: 20171025
